FAERS Safety Report 9666201 (Version 2)
Quarter: 2013Q4

REPORT INFORMATION
  Report Type: Report from Study
  Country: US (occurrence: US)
  Receive Date: 20131104
  Receipt Date: 20131210
  Transmission Date: 20140711
  Serious: Yes (Other)
  Sender: FDA-Public Use
  Company Number: US-ALEXION-A201302881

PATIENT
  Age: 76 Year
  Sex: Female
  Weight: 73.4 kg

DRUGS (14)
  1. SOLIRIS [Suspect]
     Indication: PAROXYSMAL NOCTURNAL HAEMOGLOBINURIA
     Dosage: 900 MG, Q12DAYS
     Route: 042
  2. XANAX [Concomitant]
     Indication: ANXIETY
     Dosage: 5 MG, TID PRN
     Route: 048
  3. NEORAL [Concomitant]
     Dosage: 100 MG/ML, 2 ML QD
     Route: 048
  4. VITAMIN B12 [Concomitant]
     Indication: VITAMIN B12 DEFICIENCY
     Dosage: 1,000 MCG/M, 1 ML QD
     Route: 030
  5. ARANESP [Concomitant]
     Dosage: 200 MCG, UNK
     Route: 058
  6. AUGMENTIN [Concomitant]
     Dosage: 875 MG, BID
     Route: 048
  7. ZITHROMAX Z-PACK [Concomitant]
     Dosage: 250 MG, AS DIRECTED
     Route: 048
  8. METOPROLOL TARTRATE [Concomitant]
     Indication: ATRIAL FIBRILLATION
     Dosage: 25 MG, QD
     Route: 048
  9. METOPROLOL TARTRATE [Concomitant]
     Indication: PALPITATIONS
  10. FOLIC ACID [Concomitant]
     Dosage: 1 MG, QD
     Route: 048
  11. CIPRO [Concomitant]
     Dosage: 500 MG, BID
     Route: 048
  12. LEVAQUIN [Concomitant]
     Dosage: 500 MG, QD
     Route: 048
  13. DYAZIDE [Concomitant]
     Dosage: 37.5-25 MG, QD
     Route: 048
  14. PROCRIT [Concomitant]
     Indication: HAEMOGLOBIN DECREASED
     Dosage: 40 MCG, UNK
     Route: 058

REACTIONS (2)
  - Haemoglobin decreased [Recovering/Resolving]
  - Upper respiratory tract infection [Unknown]
